FAERS Safety Report 23291614 (Version 1)
Quarter: 2023Q4

REPORT INFORMATION
  Report Type: Spontaneous
  Country: US (occurrence: US)
  Receive Date: 20231213
  Receipt Date: 20231213
  Transmission Date: 20240109
  Serious: No
  Sender: FDA-Public Use
  Company Number: US-ALVOGEN-2023089159

PATIENT
  Sex: Female

DRUGS (3)
  1. FENTANYL [Suspect]
     Active Substance: FENTANYL\FENTANYL CITRATE
     Indication: Pain
     Dosage: FENTANYL PATCHES WERE USED COUPLE OF MONTHS BACK.
  2. FENTANYL [Suspect]
     Active Substance: FENTANYL\FENTANYL CITRATE
     Indication: Pain
     Dosage: STRENGTH: 75 MCG/HOUR?EXPIRATION DATE: AUG-2025
  3. OXYCODONE [Suspect]
     Active Substance: OXYCODONE
     Indication: Arthralgia
     Dosage: 4-5 TIMES A DAY

REACTIONS (3)
  - Device physical property issue [Unknown]
  - Drug effect less than expected [Unknown]
  - Wrong technique in device usage process [Unknown]
